FAERS Safety Report 13051539 (Version 1)
Quarter: 2016Q4

REPORT INFORMATION
  Report Type: Spontaneous
  Country: US (occurrence: US)
  Receive Date: 20161221
  Receipt Date: 20161221
  Transmission Date: 20170207
  Serious: Yes (Hospitalization)
  Sender: FDA-Public Use
  Company Number: None

PATIENT
  Age: 67 Year
  Sex: Male
  Weight: 86.71 kg

DRUGS (10)
  1. RIBAVIRIN 200MG MERCK + CO., INC. [Suspect]
     Active Substance: RIBAVIRIN
     Route: 048
  2. SENNA-DOCUSATA (SENNA-PLUS) [Concomitant]
  3. LACTULOSE (CHRONULAC) [Concomitant]
  4. STIOLTO RESPIMAT [Concomitant]
     Active Substance: OLODATEROL HYDROCHLORIDE\TIOTROPIUM BROMIDE MONOHYDRATE
  5. SOFOSBUVIR/VELPATASVIR 400-100MG GILEAD [Suspect]
     Active Substance: SOFOSBUVIR\VELPATASVIR
     Route: 048
     Dates: start: 20160816
  6. TRAMADOL (ULTRAM) [Concomitant]
  7. SPIRONOLACTONE (ALDACTONE) [Concomitant]
  8. CHOLECALCIFEROL [Concomitant]
     Active Substance: CHOLECALCIFEROL
  9. VITAMIN D3 [Concomitant]
     Active Substance: CHOLECALCIFEROL
  10. LASIX [Concomitant]
     Active Substance: FUROSEMIDE

REACTIONS (3)
  - Ascites [None]
  - Hepatocellular carcinoma [None]
  - Hepatic cirrhosis [None]

NARRATIVE: CASE EVENT DATE: 20160901
